FAERS Safety Report 9553629 (Version 2)
Quarter: 2013Q3

REPORT INFORMATION
  Report Type: Spontaneous
  Country: JP (occurrence: JP)
  Receive Date: 20130925
  Receipt Date: 20130925
  Transmission Date: 20140515
  Serious: Yes (Death, Hospitalization)
  Sender: FDA-Public Use
  Company Number: JP-PFIZER INC-2013210737

PATIENT
  Age: 49 Year
  Sex: Male
  Weight: 65 kg

DRUGS (11)
  1. ZYVOX [Suspect]
     Indication: ENDOCARDITIS
     Dosage: 600 MG, 2X/DAY
     Route: 041
     Dates: start: 20130309, end: 20130322
  2. ZYVOX [Suspect]
     Indication: STAPHYLOCOCCAL SEPSIS
     Dosage: UNK
     Dates: start: 20130419, end: 20130424
  3. GENTACIN [Concomitant]
  4. NORADRENALINE [Concomitant]
  5. DOBUPUM [Concomitant]
     Route: 042
  6. MIDAZOLAM [Concomitant]
  7. NAOTAMIN [Concomitant]
  8. PITRESSIN [Concomitant]
  9. TAKEPRON [Concomitant]
  10. BIOFERMIN R [Concomitant]
  11. CALONAL [Concomitant]

REACTIONS (2)
  - Drug ineffective [Fatal]
  - Platelet count decreased [Recovering/Resolving]
